FAERS Safety Report 19938191 (Version 2)
Quarter: 2021Q4

REPORT INFORMATION
  Report Type: Other
  Country: US (occurrence: US)
  Receive Date: 20211011
  Receipt Date: 20211029
  Transmission Date: 20220303
  Serious: Yes (Other)
  Sender: FDA-Public Use
  Company Number: US-ROCHE-2874842

PATIENT
  Sex: Female

DRUGS (16)
  1. ROZLYTREK [Suspect]
     Active Substance: ENTRECTINIB
     Indication: Lymphoma
     Dosage: TAKE 1 CAPSULE BY MOUTH DAILY
     Route: 048
  2. SODIUM CHLORIDE [Concomitant]
     Active Substance: SODIUM CHLORIDE
  3. PREDNISONE [Concomitant]
     Active Substance: PREDNISONE
  4. ONDANSETRON [Concomitant]
     Active Substance: ONDANSETRON
  5. ONDANSETRON HYDROCHLORIDE [Concomitant]
     Active Substance: ONDANSETRON HYDROCHLORIDE
  6. KYTRIL [Concomitant]
     Active Substance: GRANISETRON HYDROCHLORIDE
  7. DECADRON [Concomitant]
     Active Substance: DEXAMETHASONE
  8. ZANTAC [Concomitant]
     Active Substance: RANITIDINE HYDROCHLORIDE
  9. FLUCELVAX NOS [Concomitant]
     Active Substance: INFLUENZA A VIRUS A/BRISBANE/10/2010 (H1N1) ANTIGEN (MDCK CELL DERIVED, PROPIOLACTONE INACTIVATED)\I
  10. BENADRYL [Concomitant]
     Active Substance: DIPHENHYDRAMINE HYDROCHLORIDE
  11. TAXOL [Concomitant]
     Active Substance: PACLITAXEL
  12. PARAPLATIN [Concomitant]
     Active Substance: CARBOPLATIN
  13. SODIUM CHONDROITIN SULFATE [Concomitant]
     Active Substance: SODIUM CHONDROITIN SULFATE
  14. LEVOTHYROXINE [Concomitant]
     Active Substance: LEVOTHYROXINE
  15. OMEPRAZOLE [Concomitant]
     Active Substance: OMEPRAZOLE
  16. GLUCOSAMINE [Concomitant]
     Active Substance: GLUCOSAMINE

REACTIONS (4)
  - Off label use [Unknown]
  - Neoplasm malignant [Unknown]
  - Memory impairment [Unknown]
  - Inappropriate schedule of product administration [Unknown]
